FAERS Safety Report 22013440 (Version 4)
Quarter: 2023Q1

REPORT INFORMATION
  Report Type: Report from Study
  Country: US (occurrence: US)
  Receive Date: 20230220
  Receipt Date: 20230328
  Transmission Date: 20230417
  Serious: Yes (Death)
  Sender: FDA-Public Use
  Company Number: US-ABBVIE-4313209

PATIENT
  Sex: Male

DRUGS (37)
  1. VENCLEXTA [Suspect]
     Active Substance: VENETOCLAX
     Indication: B-cell small lymphocytic lymphoma
     Route: 048
  2. VENCLEXTA [Suspect]
     Active Substance: VENETOCLAX
     Indication: B-cell small lymphocytic lymphoma
     Dosage: WEEK 3
     Route: 048
  3. VENCLEXTA [Suspect]
     Active Substance: VENETOCLAX
     Indication: B-cell small lymphocytic lymphoma
     Dosage: WITH BREAKFAST,DO NOT START BEFORE 31MAY2022, TAKE 10MG PO DAILY FOR WEEK ONE RAMP UP DOSING
     Route: 048
     Dates: start: 20220531
  4. VENCLEXTA [Suspect]
     Active Substance: VENETOCLAX
     Indication: B-cell small lymphocytic lymphoma
     Dosage: WEAK 4
     Route: 048
  5. VENCLEXTA [Suspect]
     Active Substance: VENETOCLAX
     Indication: B-cell small lymphocytic lymphoma
     Dosage: DOSE: 200MG ,  TAKE 2 TABLET(S) BY MOUTH DAILY WITH BREAKFAST DO NOT START BEFORE 25-JAN-2023
     Route: 048
     Dates: start: 20230125
  6. VENCLEXTA [Suspect]
     Active Substance: VENETOCLAX
     Indication: B-cell small lymphocytic lymphoma
     Dosage: 10 MG  WEEK 2
     Route: 048
  7. VENCLEXTA [Suspect]
     Active Substance: VENETOCLAX
     Indication: B-cell small lymphocytic lymphoma
     Dosage: FORM STRENGTH  100 MG ?DURATION TEXT: 2 TABLET DAILY
     Route: 048
  8. VITAMIN C [Concomitant]
     Active Substance: ASCORBIC ACID
     Indication: Product used for unknown indication
     Route: 048
  9. COMPAZINE [Concomitant]
     Active Substance: PROCHLORPERAZINE MALEATE
     Indication: Nausea
     Route: 048
  10. ALFALFA [Concomitant]
     Active Substance: ALFALFA
     Indication: Product used for unknown indication
     Route: 048
  11. IMDUR [Concomitant]
     Active Substance: ISOSORBIDE MONONITRATE
     Indication: Product used for unknown indication
     Route: 048
  12. IMDUR [Concomitant]
     Active Substance: ISOSORBIDE MONONITRATE
     Indication: Product used for unknown indication
     Route: 048
  13. BACTRIM [Concomitant]
     Active Substance: SULFAMETHOXAZOLE\TRIMETHOPRIM
     Indication: Product used for unknown indication
     Dosage: 400-80 MG    BACTRIM SS
     Route: 048
  14. LASIX [Concomitant]
     Active Substance: FUROSEMIDE
     Indication: Product used for unknown indication
     Route: 048
  15. TOPROL XL [Concomitant]
     Active Substance: METOPROLOL SUCCINATE
     Indication: Product used for unknown indication
     Route: 048
  16. LIPITOR [Concomitant]
     Active Substance: ATORVASTATIN CALCIUM
     Indication: Product used for unknown indication
     Route: 048
  17. Urinozinc prostate plus [Concomitant]
     Indication: Product used for unknown indication
  18. Urinozinc prostate plus [Concomitant]
     Indication: Product used for unknown indication
  19. COZAAR [Concomitant]
     Active Substance: LOSARTAN POTASSIUM
     Indication: Product used for unknown indication
     Route: 048
  20. RANEXA [Concomitant]
     Active Substance: RANOLAZINE
     Indication: Product used for unknown indication
     Dosage: 12 HR TABLET
     Route: 048
  21. EMLA [Concomitant]
     Active Substance: LIDOCAINE\PRILOCAINE
     Indication: Product used for unknown indication
     Dosage: APPLY TO PORT 30 MIN PRIOR TO INFUSION APPT
  22. EMLA [Concomitant]
     Active Substance: LIDOCAINE\PRILOCAINE
     Indication: Product used for unknown indication
     Dosage: APPLY TO PORT 30 MIN PRIOR TO INFUSION APPT
  23. ONE A DAY MEN^S 50 + HEALTHY ADVANTAGE [Concomitant]
     Indication: Product used for unknown indication
     Dosage: WITHOUT IRON   MULTIVITAMIN MEN 50+ PO
     Route: 048
  24. ONE A DAY MEN^S 50 + HEALTHY ADVANTAGE [Concomitant]
     Indication: Product used for unknown indication
     Dosage: WITHOUT IRON
     Route: 048
  25. PACERONE [Concomitant]
     Active Substance: AMIODARONE HYDROCHLORIDE
     Indication: Product used for unknown indication
     Route: 048
  26. PLAVIX [Concomitant]
     Active Substance: CLOPIDOGREL BISULFATE
     Indication: Product used for unknown indication
     Route: 048
  27. ZOVIRAX [Concomitant]
     Active Substance: ACYCLOVIR
     Indication: Product used for unknown indication
     Route: 048
  28. METAMUCIL [Concomitant]
     Active Substance: PLANTAGO SEED
     Indication: Product used for unknown indication
     Dosage: 58.12 % PACKET FOR SUSPENSION    METAMUCIL MULTIHEALTH FIBER
     Route: 048
  29. METAMUCIL [Concomitant]
     Active Substance: PLANTAGO SEED
     Indication: Product used for unknown indication
     Dosage: 58.12 % PACKET FOR SUSPENSION
     Route: 048
  30. LECITHIN [Concomitant]
     Active Substance: LECITHIN
     Indication: Product used for unknown indication
     Route: 048
  31. CALCIUM\MAGNESIUM [Concomitant]
     Active Substance: CALCIUM\MAGNESIUM
     Indication: Product used for unknown indication
     Dosage: 100-50 MG
     Route: 048
  32. ZYLOPRIM [Concomitant]
     Active Substance: ALLOPURINOL
     Indication: Product used for unknown indication
     Route: 048
  33. ELIQUIS [Concomitant]
     Active Substance: APIXABAN
     Indication: Product used for unknown indication
     Route: 048
  34. NITROSTAT [Concomitant]
     Active Substance: NITROGLYCERIN
     Indication: Chest pain
     Route: 060
  35. NITROSTAT [Concomitant]
     Active Substance: NITROGLYCERIN
     Indication: Chest pain
     Route: 060
  36. MELATONIN [Concomitant]
     Active Substance: MELATONIN
     Indication: Product used for unknown indication
     Route: 048
  37. B Complex-B12 [Concomitant]
     Indication: Product used for unknown indication
     Route: 048

REACTIONS (1)
  - COVID-19 [Fatal]
